FAERS Safety Report 6862287-5 (Version None)
Quarter: 2010Q3

REPORT INFORMATION
  Report Type: 
  Country: None (occurrence: None)
  Receive Date: 20100721
  Receipt Date: 20100716
  Transmission Date: 20110219
  Serious: Yes (Hospitalization, Other)
  Sender: FDA-Public Use
  Company Number: FR-BRISTOL-MYERS SQUIBB COMPANY-15197940

PATIENT
  Age: 79 Year
  Sex: Female

DRUGS (1)
  1. COUMADIN [Suspect]
     Indication: ATRIAL FIBRILLATION
     Dates: start: 20090601, end: 20100602

REACTIONS (5)
  - FALL [None]
  - INTERNATIONAL NORMALISED RATIO DECREASED [None]
  - INTRACRANIAL PRESSURE INCREASED [None]
  - SPINAL FRACTURE [None]
  - SUBDURAL HAEMATOMA [None]
